FAERS Safety Report 13355169 (Version 1)
Quarter: 2017Q1

REPORT INFORMATION
  Report Type: Spontaneous
  Country: US (occurrence: US)
  Receive Date: 20170321
  Receipt Date: 20170321
  Transmission Date: 20170429
  Serious: No
  Sender: FDA-Public Use
  Company Number: US-BAUSCH-BL-2016-010611

PATIENT
  Age: 47 Year
  Sex: Male
  Weight: 95.34 kg

DRUGS (2)
  1. TRETINOIN CREAM 0.05% [Suspect]
     Active Substance: TRETINOIN
     Indication: ACNE
     Route: 061
     Dates: start: 201604
  2. ALLEGRA [Concomitant]
     Active Substance: FEXOFENADINE HYDROCHLORIDE
     Indication: SEASONAL ALLERGY
     Route: 048

REACTIONS (1)
  - Application site pain [Recovered/Resolved]

NARRATIVE: CASE EVENT DATE: 201604
